FAERS Safety Report 7104400-0 (Version None)
Quarter: 2010Q4

REPORT INFORMATION
  Report Type: 
  Country: None (occurrence: None)
  Receive Date: 20101115
  Receipt Date: 20101110
  Transmission Date: 20110411
  Serious: Yes (Other)
  Sender: FDA-Public Use
  Company Number: JP-AMGEN-JPNCT2010003303

PATIENT

DRUGS (7)
  1. PANITUMUMAB [Suspect]
     Indication: COLORECTAL CANCER
     Dosage: 6 MG/KG, QWK
     Route: 041
     Dates: start: 20100820, end: 20100929
  2. CORTICOSTEROIDS [Concomitant]
     Indication: PROPHYLAXIS
     Route: 065
  3. OXALIPLATIN [Concomitant]
     Indication: COLORECTAL CANCER
     Route: 041
     Dates: start: 20100830, end: 20100913
  4. FLUOROURACIL [Concomitant]
     Indication: COLORECTAL CANCER
     Dosage: UNK UNK, Q2WK
     Route: 042
     Dates: start: 20100830, end: 20100913
  5. FLUOROURACIL [Concomitant]
     Route: 041
     Dates: start: 20100830, end: 20100913
  6. CALCIUM LEVOFOLINATE [Concomitant]
     Indication: COLORECTAL CANCER
     Route: 041
     Dates: start: 20100830, end: 20100913
  7. RAMELTEON [Concomitant]
     Route: 048

REACTIONS (2)
  - DRY SKIN [None]
  - SURGERY [None]
